FAERS Safety Report 10085744 (Version 2)
Quarter: 2014Q2

REPORT INFORMATION
  Report Type: Spontaneous
  Country: IT (occurrence: IT)
  Receive Date: 20140418
  Receipt Date: 20140425
  Transmission Date: 20141212
  Serious: Yes (Hospitalization)
  Sender: FDA-Public Use
  Company Number: IT-UCBSA-118373

PATIENT
  Age: 75 Year
  Sex: Male

DRUGS (8)
  1. NEUPRO [Suspect]
     Indication: PARKINSON^S DISEASE
     Dosage: 4MG/24H 28 TRANSDERMAL PATCHES.
     Route: 062
     Dates: start: 20140213, end: 20140222
  2. NOVORAPID [Concomitant]
  3. LANTUS [Concomitant]
  4. SIMESTAT [Concomitant]
  5. MADOPAR [Concomitant]
  6. MADOPAR [Concomitant]
     Dosage: DOSE INCREASED
  7. MIRAPEXIN [Concomitant]
  8. ZOLPIDEM ACTAVIS [Concomitant]

REACTIONS (2)
  - Catatonia [Recovering/Resolving]
  - Psychomotor skills impaired [Recovering/Resolving]
